FAERS Safety Report 9944051 (Version 1)
Quarter: 2014Q1

REPORT INFORMATION
  Report Type: Spontaneous
  Country: US (occurrence: US)
  Receive Date: 20140303
  Receipt Date: 20140303
  Transmission Date: 20141002
  Serious: No
  Sender: FDA-Public Use
  Company Number: US-ABBVIE-13P-163-1046619-00

PATIENT
  Sex: Male

DRUGS (2)
  1. HUMIRA [Suspect]
     Indication: PSORIASIS
     Dosage: 80MG LOADING DOSE
  2. HUMIRA [Suspect]
     Dosage: 40 MG LOADING DOSE 7 DAYS LATER

REACTIONS (2)
  - Injection site reaction [Recovered/Resolved]
  - Influenza like illness [Recovered/Resolved]
